FAERS Safety Report 15499799 (Version 1)
Quarter: 2018Q4

REPORT INFORMATION
  Report Type: Spontaneous
  Country: JP (occurrence: JP)
  Receive Date: 20181015
  Receipt Date: 20181015
  Transmission Date: 20190205
  Serious: Yes (Other)
  Sender: FDA-Public Use
  Company Number: JP-GLAXOSMITHKLINE-JP2017204390

PATIENT
  Age: 77 Year
  Sex: Female

DRUGS (1)
  1. DICLOFENAC [Suspect]
     Active Substance: DICLOFENAC
     Indication: LUMBAR SPINAL STENOSIS
     Dosage: 75 MG, QD
     Route: 048

REACTIONS (14)
  - Abdominal pain lower [Recovered/Resolved]
  - Vomiting [Unknown]
  - Hypophagia [Unknown]
  - Product use in unapproved indication [Unknown]
  - Small intestine ulcer [Unknown]
  - Decreased appetite [Recovered/Resolved]
  - Gastrointestinal disorder [Unknown]
  - Gastric ulcer [Unknown]
  - Hypoproteinaemia [Unknown]
  - Small intestinal stenosis [Unknown]
  - Anaemia [Unknown]
  - Inflammation [Recovering/Resolving]
  - Diarrhoea [Recovered/Resolved]
  - General physical health deterioration [Unknown]
